FAERS Safety Report 4869428-X (Version None)
Quarter: 2005Q4

REPORT INFORMATION
  Report Type: 
  Country: None (occurrence: None)
  Receive Date: 20051230
  Receipt Date: 20051219
  Transmission Date: 20060501
  Serious: Yes (Hospitalization, Disabling)
  Sender: FDA-Public Use
  Company Number: US-MERCK-0512USA03369

PATIENT
  Age: 69 Year
  Sex: Female
  Weight: 65 kg

DRUGS (1)
  1. VIOXX [Suspect]
     Indication: ARTHRALGIA
     Route: 048
     Dates: start: 20000526, end: 20040101

REACTIONS (8)
  - ANXIETY [None]
  - ARTHROPATHY [None]
  - CARDIOVASCULAR DISORDER [None]
  - DEPRESSION [None]
  - EXTRASYSTOLES [None]
  - GALLBLADDER DISORDER [None]
  - INTERVERTEBRAL DISC PROTRUSION [None]
  - MYOCARDIAL INFARCTION [None]
